FAERS Safety Report 9936980 (Version 1)
Quarter: 2014Q1

REPORT INFORMATION
  Report Type: Spontaneous
  Country: US (occurrence: None)
  Receive Date: 20140115
  Receipt Date: 20140115
  Transmission Date: 20141002
  Serious: No
  Sender: FDA-Public Use
  Company Number: 2013US002622

PATIENT
  Age: 56 Year
  Sex: Female
  Weight: 49 kg

DRUGS (5)
  1. ICLUSIG (PONATINIB) TABLET, 45MG [Suspect]
     Indication: CHRONIC MYELOID LEUKAEMIA
     Route: 048
     Dates: start: 20130129
  2. LEVOTHYROXINE (LEVOTHYROXINE) [Concomitant]
  3. HYDROCODONE (HYDROCODONE) [Concomitant]
  4. LYRICA (PREGABALIN) [Concomitant]
  5. PHENERGAN (PROMETHAZINE HYDROCHLORIDE) [Concomitant]

REACTIONS (3)
  - Alopecia [None]
  - Skin exfoliation [None]
  - Dry skin [None]
